FAERS Safety Report 17960498 (Version 1)
Quarter: 2020Q2

REPORT INFORMATION
  Report Type: Spontaneous
  Country: FR (occurrence: FR)
  Receive Date: 20200630
  Receipt Date: 20200630
  Transmission Date: 20200714
  Serious: Yes (Hospitalization, Other)
  Sender: FDA-Public Use
  Company Number: FR-AUROBINDO-AUR-APL-2020-031220

PATIENT
  Age: 60 Year
  Sex: Male

DRUGS (2)
  1. ARTICHAUT [CYNARA CARDUNCULUS] [Suspect]
     Active Substance: HERBALS\HOMEOPATHICS
     Indication: WEIGHT DECREASED
     Dosage: UNK
     Route: 048
     Dates: start: 201910
  2. PARACETAMOL [Suspect]
     Active Substance: ACETAMINOPHEN
     Indication: PAIN
     Dosage: 1 DOSAGE FORM
     Route: 048

REACTIONS (1)
  - Pancreatitis acute [Recovered/Resolved]

NARRATIVE: CASE EVENT DATE: 20191228
